FAERS Safety Report 5990001-4 (Version None)
Quarter: 2008Q4

REPORT INFORMATION
  Report Type: 
  Country: None (occurrence: None)
  Receive Date: 20081209
  Receipt Date: 20081209
  Transmission Date: 20090506
  Serious: Yes (Life-Threatening, Other)
  Sender: FDA-Public Use
  Company Number: None

PATIENT
  Age: 50 Year
  Sex: Male
  Weight: 43.7 kg

DRUGS (6)
  1. FENTANYL [Suspect]
     Indication: PAIN
     Dosage: 50 MCG/HR Q 3 DAYS TRANSDERMAL
     Route: 062
     Dates: start: 20081204, end: 20081205
  2. FENTANYL [Suspect]
     Indication: PAIN
     Dosage: 50MCG/HR Q 3 DAYS TRANSDERMAL
     Route: 062
     Dates: start: 20081204, end: 20081205
  3. NEFAZODONE HCL [Concomitant]
  4. BACLOFEN [Concomitant]
  5. DETROL [Concomitant]
  6. LORAZEPAM [Concomitant]

REACTIONS (1)
  - RESPIRATORY DISORDER [None]
